FAERS Safety Report 7672467-7 (Version None)
Quarter: 2011Q3

REPORT INFORMATION
  Report Type: 
  Country: None (occurrence: None)
  Receive Date: 20110803
  Receipt Date: 20110722
  Transmission Date: 20111222
  Serious: Yes (Hospitalization, Other)
  Sender: FDA-Public Use
  Company Number: 2011SP016569

PATIENT
  Age: 21 Year
  Sex: Female
  Weight: 77.1115 kg

DRUGS (1)
  1. NUVARING [Suspect]
     Indication: CONTRACEPTION
     Dates: start: 20090222, end: 20091001

REACTIONS (7)
  - HYPERCOAGULATION [None]
  - PELVIC VENOUS THROMBOSIS [None]
  - PULMONARY EMBOLISM [None]
  - ANTIPHOSPHOLIPID ANTIBODIES POSITIVE [None]
  - VAGINITIS BACTERIAL [None]
  - THROMBOSIS [None]
  - LUNG NEOPLASM [None]
